FAERS Safety Report 4267025-0 (Version None)
Quarter: 2004Q1

REPORT INFORMATION
  Report Type: 
  Country: None (occurrence: None)
  Receive Date: 20040107
  Receipt Date: 20031222
  Transmission Date: 20041129
  Serious: Yes (Hospitalization, Other)
  Sender: FDA-Public Use
  Company Number: 189534

PATIENT
  Age: 28 Year
  Sex: Female
  Weight: 53 kg

DRUGS (5)
  1. AVONEX [Suspect]
     Indication: MULTIPLE SCLEROSIS
     Dosage: 30 MCG QW IM
     Route: 030
     Dates: start: 20030917, end: 20030917
  2. AVONEX [Suspect]
     Indication: MULTIPLE SCLEROSIS
     Dosage: 7.5 MCG QW IM
     Route: 030
     Dates: start: 20031006, end: 20031006
  3. AVONEX [Suspect]
     Indication: MULTIPLE SCLEROSIS
     Dosage: 7.5 MCG QW IM
     Route: 030
     Dates: start: 20031209, end: 20031209
  4. VENTOLIN [Concomitant]
  5. PULMICORT [Concomitant]

REACTIONS (3)
  - ASTHMA [None]
  - CHEST PAIN [None]
  - DRUG HYPERSENSITIVITY [None]
